FAERS Safety Report 4774619-2 (Version None)
Quarter: 2005Q3

REPORT INFORMATION
  Report Type: 
  Country: None (occurrence: None)
  Receive Date: 20050921
  Receipt Date: 20050810
  Transmission Date: 20060218
  Serious: Yes (Hospitalization)
  Sender: FDA-Public Use
  Company Number: 2005AP04385

PATIENT
  Age: 31159 Day
  Sex: Female
  Weight: 39.5 kg

DRUGS (4)
  1. OMEPRAZOLE [Suspect]
     Indication: GASTRIC ULCER
     Route: 048
     Dates: start: 20050801, end: 20050809
  2. OMEPRAZOLE [Suspect]
     Route: 042
     Dates: start: 20050731, end: 20050731
  3. ALOSENN [Concomitant]
     Route: 048
     Dates: start: 19960501
  4. CALTAN [Concomitant]
     Route: 048
     Dates: start: 19960501

REACTIONS (3)
  - DEPRESSED LEVEL OF CONSCIOUSNESS [None]
  - HAEMODIALYSIS [None]
  - SOMNOLENCE [None]
